FAERS Safety Report 8045252-4 (Version None)
Quarter: 2012Q1

REPORT INFORMATION
  Report Type: 
  Country: None (occurrence: None)
  Receive Date: 20120113
  Receipt Date: 20120105
  Transmission Date: 20120608
  Serious: Yes (Death, Other)
  Sender: FDA-Public Use
  Company Number: DK-AMGEN-DNKCT2011041559

PATIENT
  Age: 78 Year
  Sex: Female
  Weight: 59 kg

DRUGS (3)
  1. REMICADE [Suspect]
     Indication: RHEUMATOID ARTHRITIS
     Dosage: 180 MG WEEK 0,2,6+8
     Dates: start: 20081014, end: 20081127
  2. ETANERCEPT [Suspect]
     Indication: RHEUMATOID ARTHRITIS
     Dosage: 50 MG, QWK
     Route: 058
     Dates: start: 20080709, end: 20081013
  3. ACTEMRA [Suspect]
     Indication: RHEUMATOID ARTHRITIS
     Dosage: LAST 3 INFUSIONS OF TOCILIZUMAB (ROACTEMRA) WERE 02NOV2010 (560MG/KG), 30NOV2010 (560MG/KG) AND 21DE
     Dates: start: 20090127, end: 20101221

REACTIONS (1)
  - LUNG NEOPLASM MALIGNANT [None]
